FAERS Safety Report 12580873 (Version 2)
Quarter: 2016Q3

REPORT INFORMATION
  Report Type: Spontaneous
  Country: US (occurrence: US)
  Receive Date: 20160721
  Receipt Date: 20160915
  Transmission Date: 20161109
  Serious: Yes (Other)
  Sender: FDA-Public Use
  Company Number: US-TEVA-673753USA

PATIENT
  Age: 58 Year
  Sex: Female

DRUGS (1)
  1. ZECUITY [Suspect]
     Active Substance: SUMATRIPTAN SUCCINATE
     Indication: MIGRAINE
     Route: 062
     Dates: start: 20160405, end: 20160405

REACTIONS (4)
  - Application site erythema [Recovered/Resolved]
  - Drug effect incomplete [Unknown]
  - Application site pain [Recovered/Resolved]
  - Sunburn [Recovered/Resolved with Sequelae]

NARRATIVE: CASE EVENT DATE: 20160405
